FAERS Safety Report 22089671 (Version 1)
Quarter: 2023Q1

REPORT INFORMATION
  Report Type: Spontaneous
  Country: ES (occurrence: ES)
  Receive Date: 20230313
  Receipt Date: 20230313
  Transmission Date: 20230417
  Serious: Yes (Other)
  Sender: FDA-Public Use
  Company Number: None

PATIENT
  Age: 48 Year
  Sex: Female

DRUGS (2)
  1. ACETAMINOPHEN [Suspect]
     Active Substance: ACETAMINOPHEN
     Indication: Cellulitis
     Dosage: 1 G
     Route: 065
     Dates: start: 202112
  2. AMOXICILLIN [Suspect]
     Active Substance: AMOXICILLIN
     Indication: Cellulitis
     Dosage: UNK
     Route: 065
     Dates: start: 202112, end: 202112

REACTIONS (8)
  - Chest discomfort [Unknown]
  - Palpitations [Unknown]
  - Face oedema [Unknown]
  - Hyperhidrosis [Unknown]
  - Diarrhoea [Unknown]
  - Dizziness [Unknown]
  - Urticaria [Unknown]
  - Pruritus [Unknown]

NARRATIVE: CASE EVENT DATE: 20211201
